FAERS Safety Report 24539566 (Version 2)
Quarter: 2024Q4

REPORT INFORMATION
  Report Type: Report from Study
  Country: CN (occurrence: CN)
  Receive Date: 20241023
  Receipt Date: 20241112
  Transmission Date: 20250115
  Serious: No
  Sender: DR REDDYS
  Company Number: CN-RDY-CLI/CHN/24/0015481

PATIENT
  Age: 14 Month
  Sex: Male
  Weight: 10 kg

DRUGS (4)
  1. VIGABATRIN [Suspect]
     Active Substance: VIGABATRIN
     Indication: Infantile spasms
     Dosage: 2 BAGS PER DAY
     Route: 065
     Dates: start: 20240716, end: 20240718
  2. VIGABATRIN [Suspect]
     Active Substance: VIGABATRIN
     Dosage: 2 BAGS PER DAY??75 MG IN 5 ML
     Route: 065
     Dates: start: 20240719, end: 20240721
  3. VIGABATRIN [Suspect]
     Active Substance: VIGABATRIN
     Dosage: 2 BAGS PER DAY??100 MG IN 7.5 ML
     Route: 065
     Dates: start: 20240722, end: 20240724
  4. VIGABATRIN [Suspect]
     Active Substance: VIGABATRIN
     Dosage: 4 BAGS PER DAY??125 MG IN 10 ML
     Route: 065
     Dates: start: 20240725, end: 20240730

REACTIONS (1)
  - Visual evoked potentials abnormal [Recovering/Resolving]

NARRATIVE: CASE EVENT DATE: 20240814
